FAERS Safety Report 8020271-2 (Version None)
Quarter: 2012Q1

REPORT INFORMATION
  Report Type: 
  Country: None (occurrence: None)
  Receive Date: 20120103
  Receipt Date: 20120102
  Transmission Date: 20120608
  Serious: Yes (Hospitalization, Other)
  Sender: FDA-Public Use
  Company Number: CA-ROCHE-796490

PATIENT
  Sex: Female
  Weight: 89.8 kg

DRUGS (17)
  1. LYRICA [Concomitant]
  2. EFFEXOR [Concomitant]
  3. OMEPRAZOLE [Concomitant]
  4. ATIVAN [Concomitant]
  5. CELEBREX [Concomitant]
  6. SYNTHROID [Concomitant]
  7. DIPHENHYDRAMINE HCL [Concomitant]
     Indication: PREMEDICATION
     Route: 048
     Dates: start: 20110208, end: 20110208
  8. ADALAT [Concomitant]
  9. RANITIDINE [Concomitant]
  10. PREDNISONE TAB [Concomitant]
  11. DEMEROL [Concomitant]
  12. MABTHERA [Suspect]
     Indication: RHEUMATOID ARTHRITIS
     Dosage: DAY 1 AND 15
     Route: 042
  13. ZOPICLONE [Concomitant]
  14. INSULIN [Concomitant]
  15. METHYLPREDNISOLONE [Concomitant]
     Indication: PREMEDICATION
     Route: 042
     Dates: start: 20110208, end: 20110208
  16. LIPITOR [Concomitant]
  17. ACETAMINOFEN [Concomitant]
     Indication: PREMEDICATION
     Route: 048
     Dates: start: 20110208, end: 20110208

REACTIONS (2)
  - BOWEN'S DISEASE [None]
  - BASAL CELL CARCINOMA [None]
